FAERS Safety Report 25707286 (Version 1)
Quarter: 2025Q3

REPORT INFORMATION
  Report Type: Spontaneous
  Country: US (occurrence: US)
  Receive Date: 20250820
  Receipt Date: 20250820
  Transmission Date: 20251021
  Serious: Yes (Other)
  Sender: Alpha Cognition
  Company Number: US-ALPHA COGNITION-2025-ZUN-00006

PATIENT

DRUGS (3)
  1. ZUNVEYL [Suspect]
     Active Substance: GALANTAMINE BENZOATE
     Indication: Product used for unknown indication
     Route: 065
     Dates: start: 202504, end: 202505
  2. ZUNVEYL [Suspect]
     Active Substance: GALANTAMINE BENZOATE
     Route: 065
     Dates: start: 202505, end: 20250527
  3. ZUNVEYL [Suspect]
     Active Substance: GALANTAMINE BENZOATE
     Route: 065
     Dates: start: 20250527

REACTIONS (4)
  - Syncope [Unknown]
  - Bradycardia [Unknown]
  - Gait disturbance [Unknown]
  - Speech disorder [Unknown]

NARRATIVE: CASE EVENT DATE: 20250501
